FAERS Safety Report 22343901 (Version 3)
Quarter: 2024Q1

REPORT INFORMATION
  Report Type: Spontaneous
  Country: US (occurrence: US)
  Receive Date: 20230519
  Receipt Date: 20240102
  Transmission Date: 20240410
  Serious: Yes (Other)
  Sender: FDA-Public Use
  Company Number: US-BRISTOL-MYERS SQUIBB COMPANY-2023-068231

PATIENT
  Age: 62 Year
  Sex: Female

DRUGS (2)
  1. POMALYST [Suspect]
     Active Substance: POMALIDOMIDE
     Indication: Plasma cell myeloma
     Dosage: TAKE 1 CAPSULE BY MOUTH WITH WATER, W/ OR W/O FOOD AT THE SAME TIME EVERY DAY FOR 21 DAYS ON THEN 7
     Route: 048
     Dates: start: 20220927
  2. POMALYST [Suspect]
     Active Substance: POMALIDOMIDE
     Dosage: TAKE 1 CAPSULE BY MOUTH WITH OR WITHOUT FOOD AT THE SAME TIME ONCE DAILY ON DAYS 1-21, FOLLOWED BY 7
     Route: 048
     Dates: start: 20220927

REACTIONS (1)
  - Urinary tract infection [Recovered/Resolved]
